FAERS Safety Report 7672320-9 (Version None)
Quarter: 2011Q3

REPORT INFORMATION
  Report Type: 
  Country: None (occurrence: None)
  Receive Date: 20110809
  Receipt Date: 20110805
  Transmission Date: 20111222
  Serious: Yes (Other)
  Sender: FDA-Public Use
  Company Number: US-PFIZER INC-2011118663

PATIENT
  Sex: Male

DRUGS (10)
  1. AMIODARONE [Concomitant]
     Indication: HEART RATE ABNORMAL
     Dosage: UNK
     Dates: start: 20050101
  2. PACERONE [Concomitant]
     Indication: HEART RATE ABNORMAL
     Dosage: UNK
     Dates: start: 20050101
  3. NITROGLYCERIN [Concomitant]
     Indication: CHEST PAIN
     Dosage: UNK
     Dates: start: 19930101
  4. LIPITOR [Concomitant]
     Indication: MYOCARDIAL INFARCTION
     Dosage: UNK
     Dates: start: 19930101
  5. DIGOXIN [Concomitant]
     Indication: CARDIAC FAILURE CONGESTIVE
     Dosage: UNK
     Dates: start: 20050101
  6. BUMETANIDE [Concomitant]
     Indication: BLOOD PRESSURE
     Dosage: UNK
     Dates: start: 20050101
  7. NEXIUM [Concomitant]
     Indication: GASTROOESOPHAGEAL REFLUX DISEASE
     Dosage: UNK
     Dates: start: 20000101
  8. CHANTIX [Suspect]
     Indication: SMOKING CESSATION THERAPY
     Dosage: 0.5MG, 1 MG UNK
     Dates: start: 20070721, end: 20071021
  9. METOPROLOL [Concomitant]
     Indication: HYPERTENSION
     Dosage: UNK
     Dates: start: 20050101, end: 20100101
  10. LISINOPRIL [Concomitant]
     Indication: CARDIAC FAILURE CONGESTIVE
     Dosage: UNK
     Dates: start: 19930101

REACTIONS (4)
  - DEPRESSION [None]
  - AGGRESSION [None]
  - MENTAL DISORDER [None]
  - ANXIETY [None]
